FAERS Safety Report 10012492 (Version 2)
Quarter: 2014Q1

REPORT INFORMATION
  Report Type: Report from Study
  Country: JP (occurrence: JP)
  Receive Date: 20140314
  Receipt Date: 20140314
  Transmission Date: 20141002
  Serious: Yes (Other)
  Sender: FDA-Public Use
  Company Number: JP-GILEAD-2013-0089575

PATIENT
  Age: 71 Year
  Sex: Female
  Weight: 54 kg

DRUGS (7)
  1. AMBRISENTAN [Suspect]
     Indication: PULMONARY ARTERIAL HYPERTENSION
     Dosage: 10 MG, QD
     Route: 048
     Dates: start: 20120614
  2. AMBRISENTAN [Suspect]
     Dosage: 5 MG, QD
     Route: 048
     Dates: start: 20120517, end: 20120613
  3. ADCIRCA [Concomitant]
     Indication: PULMONARY ARTERIAL HYPERTENSION
     Dosage: UNK
     Route: 048
  4. WARFARIN [Concomitant]
     Indication: THROMBOSIS PROPHYLAXIS
     Dosage: UNK
     Route: 048
     Dates: end: 20130509
  5. LIPITOR [Concomitant]
     Dosage: UNK
     Route: 048
  6. LENDORMIN DAINIPPO [Concomitant]
     Dosage: UNK
     Route: 048
  7. ONEALFA [Concomitant]
     Dosage: UNK
     Route: 048

REACTIONS (3)
  - Melaena [Recovering/Resolving]
  - Dizziness [Recovering/Resolving]
  - Oedema peripheral [Recovering/Resolving]
